FAERS Safety Report 24330078 (Version 1)
Quarter: 2024Q3

REPORT INFORMATION
  Report Type: Spontaneous
  Country: CA (occurrence: CA)
  Receive Date: 20240917
  Receipt Date: 20240917
  Transmission Date: 20241017
  Serious: Yes (Hospitalization)
  Sender: ORGANON
  Company Number: CA-ORGANON-O2409CAN001054

PATIENT
  Age: 26 Year
  Sex: Female
  Weight: 56.69 kg

DRUGS (1)
  1. NEXPLANON [Suspect]
     Active Substance: ETONOGESTREL
     Indication: Contraception
     Dosage: 1 IMPLANT,68 MG
     Route: 058

REACTIONS (6)
  - Intentional self-injury [Recovering/Resolving]
  - Aggression [Recovering/Resolving]
  - Anxiety [Recovering/Resolving]
  - Delusion [Recovering/Resolving]
  - Paranoia [Recovering/Resolving]
  - Psychotic disorder [Recovering/Resolving]
